FAERS Safety Report 8013420-3 (Version None)
Quarter: 2011Q4

REPORT INFORMATION
  Report Type: 
  Country: None (occurrence: None)
  Receive Date: 20111229
  Receipt Date: 20111221
  Transmission Date: 20120403
  Serious: No
  Sender: FDA-Public Use
  Company Number: US-BAYER-2011-123070

PATIENT
  Sex: Female

DRUGS (1)
  1. MIRENA [Suspect]
     Dosage: 20 MCG/24HR, CONT
     Dates: start: 20090101

REACTIONS (5)
  - PREGNANCY [None]
  - BREAST TENDERNESS [None]
  - FEELING ABNORMAL [None]
  - MEDICAL DEVICE COMPLICATION [None]
  - FEELING JITTERY [None]
